FAERS Safety Report 16023716 (Version 2)
Quarter: 2019Q1

REPORT INFORMATION
  Report Type: Spontaneous
  Country: CA (occurrence: CA)
  Receive Date: 20190301
  Receipt Date: 20190312
  Transmission Date: 20190418
  Serious: Yes (Hospitalization, Other)
  Sender: FDA-Public Use
  Company Number: CA-NALPROPION PHARMACEUTICALS INC.-2019-006718

PATIENT

DRUGS (1)
  1. CONTRAVE [Suspect]
     Active Substance: BUPROPION HYDROCHLORIDE\NALTREXONE HYDROCHLORIDE
     Indication: WEIGHT CONTROL
     Dosage: UNKN (2 IN 1 D)
     Route: 065
     Dates: start: 201812, end: 20190123

REACTIONS (3)
  - Rib fracture [Recovering/Resolving]
  - Road traffic accident [Recovering/Resolving]
  - Back injury [Recovering/Resolving]

NARRATIVE: CASE EVENT DATE: 20190123
